FAERS Safety Report 5498049-3 (Version None)
Quarter: 2007Q4

REPORT INFORMATION
  Report Type: 
  Country: None (occurrence: None)
  Receive Date: 20071025
  Receipt Date: 20071013
  Transmission Date: 20080405
  Serious: Yes (Hospitalization, Other)
  Sender: FDA-Public Use
  Company Number: US-PFIZER INC-2007085815

PATIENT
  Sex: Male
  Weight: 93.181 kg

DRUGS (4)
  1. CHANTIX [Suspect]
     Indication: SMOKING CESSATION THERAPY
  2. MONOPRIL [Concomitant]
  3. OXYCODONE HCL [Concomitant]
     Indication: BACK DISORDER
  4. SOMA [Concomitant]
     Indication: BACK DISORDER

REACTIONS (3)
  - DEEP VEIN THROMBOSIS [None]
  - FOOT OPERATION [None]
  - MYALGIA [None]
